FAERS Safety Report 4842848-5 (Version None)
Quarter: 2005Q4

REPORT INFORMATION
  Report Type: 
  Country: None (occurrence: None)
  Receive Date: 20051201
  Receipt Date: 20051122
  Transmission Date: 20060501
  Serious: Yes (Life-Threatening)
  Sender: FDA-Public Use
  Company Number: GB-BRISTOL-MYERS SQUIBB COMPANY-13190640

PATIENT
  Age: 42 Year
  Sex: Female

DRUGS (2)
  1. KENALOG [Suspect]
     Indication: PLANTAR FASCIITIS
     Dates: start: 20051031, end: 20051031
  2. LIDOCAINE [Suspect]
     Indication: PLANTAR FASCIITIS
     Dates: start: 20051031, end: 20051031

REACTIONS (4)
  - LOSS OF CONSCIOUSNESS [None]
  - NAUSEA [None]
  - SYNCOPE [None]
  - URTICARIA [None]
